FAERS Safety Report 12272539 (Version 4)
Quarter: 2017Q1

REPORT INFORMATION
  Report Type: Report from Study
  Country: US (occurrence: US)
  Receive Date: 20160415
  Receipt Date: 20170128
  Transmission Date: 20170428
  Serious: Yes (Death, Hospitalization)
  Sender: FDA-Public Use
  Company Number: US-B.I. PHARMACEUTICALS,INC./RIDGEFIELD-2016-BI-13759BP

PATIENT
  Sex: Male

DRUGS (1)
  1. OFEV [Suspect]
     Active Substance: NINTEDANIB
     Indication: IDIOPATHIC PULMONARY FIBROSIS
     Route: 048
     Dates: start: 20160114

REACTIONS (6)
  - Idiopathic pulmonary fibrosis [Fatal]
  - Pneumonia [Fatal]
  - Cerebrovascular accident [Unknown]
  - Constipation [Unknown]
  - Dyspnoea exertional [Unknown]
  - Cough [Unknown]
